FAERS Safety Report 13892775 (Version 1)
Quarter: 2017Q3

REPORT INFORMATION
  Report Type: Spontaneous
  Country: US (occurrence: US)
  Receive Date: 20170822
  Receipt Date: 20170822
  Transmission Date: 20171127
  Serious: No
  Sender: FDA-Public Use
  Company Number: US-ROCHE-1303660

PATIENT
  Age: 32 Year
  Sex: Female

DRUGS (10)
  1. HERCEPTIN [Suspect]
     Active Substance: TRASTUZUMAB
     Indication: BREAST CANCER STAGE III
     Dosage: 4 MG/KG (220-MG LOADING DOSE)
     Route: 065
  2. HERCEPTIN [Suspect]
     Active Substance: TRASTUZUMAB
     Dosage: ONE FIFTH (20 MG) OF THE TOTAL CALCULATED TRASTUZUMAB DOSE
     Route: 065
  3. HERCEPTIN [Suspect]
     Active Substance: TRASTUZUMAB
     Route: 065
  4. HERCEPTIN [Suspect]
     Active Substance: TRASTUZUMAB
     Route: 065
  5. HERCEPTIN [Suspect]
     Active Substance: TRASTUZUMAB
     Dosage: WEEKLY DOSE OF 2 MG/KG, OR 110 MG
     Route: 065
  6. HERCEPTIN [Suspect]
     Active Substance: TRASTUZUMAB
     Route: 065
  7. PEGFILGRASTIM [Concomitant]
     Active Substance: PEGFILGRASTIM
     Route: 065
  8. VINORELBINE [Concomitant]
     Active Substance: VINORELBINE\VINORELBINE TARTRATE
     Dosage: FOR 12 DOSES.
     Route: 042
  9. HERCEPTIN [Suspect]
     Active Substance: TRASTUZUMAB
     Dosage: OVER 30 MINUTES
     Route: 042
  10. PACLITAXEL. [Concomitant]
     Active Substance: PACLITAXEL
     Route: 042

REACTIONS (2)
  - Liver function test increased [Recovered/Resolved]
  - Drug hypersensitivity [Recovered/Resolved]
